FAERS Safety Report 9548847 (Version 1)
Quarter: 2013Q3

REPORT INFORMATION
  Report Type: Spontaneous
  Country: CA (occurrence: None)
  Receive Date: 20130919
  Receipt Date: 20130919
  Transmission Date: 20140515
  Serious: Yes (Congenital Anomaly)
  Sender: FDA-Public Use
  Company Number: 1893058

PATIENT
  Sex: 0

DRUGS (2)
  1. METHOTREXATE [Suspect]
  2. MISOPROSTOL [Suspect]
     Route: 064

REACTIONS (16)
  - Microcephaly [None]
  - Hypertelorism of orbit [None]
  - Low set ears [None]
  - Micrognathia [None]
  - Congenital hand malformation [None]
  - Congenital nose malformation [None]
  - Spine malformation [None]
  - Foetal growth restriction [None]
  - Congenital oral malformation [None]
  - Congenital foot malformation [None]
  - Pulmonary malformation [None]
  - Maternal drugs affecting foetus [None]
  - Gastrointestinal malformation [None]
  - Bone disorder [None]
  - Abortion induced [None]
  - Umbilical cord abnormality [None]
